FAERS Safety Report 7898371-7 (Version None)
Quarter: 2011Q4

REPORT INFORMATION
  Report Type: 
  Country: None (occurrence: None)
  Receive Date: 20111107
  Receipt Date: 20111107
  Transmission Date: 20120403
  Serious: Yes (Other)
  Sender: FDA-Public Use
  Company Number: ZA-PFIZER INC-2011270108

PATIENT
  Sex: Female

DRUGS (1)
  1. VARENICLINE TARTRATE [Suspect]
     Dosage: UNK
     Route: 048

REACTIONS (6)
  - SOMNOLENCE [None]
  - STRESS [None]
  - INCREASED APPETITE [None]
  - FACIAL NERVE DISORDER [None]
  - NAUSEA [None]
  - WITHDRAWAL SYNDROME [None]
